FAERS Safety Report 9506563 (Version 2)
Quarter: 2013Q3

REPORT INFORMATION
  Report Type: Report from Study
  Country: AU (occurrence: AU)
  Receive Date: 20130906
  Receipt Date: 20130923
  Transmission Date: 20140515
  Serious: Yes (Death, Hospitalization)
  Sender: FDA-Public Use
  Company Number: PHHY2013AU098101

PATIENT
  Sex: Female

DRUGS (3)
  1. ACLASTA [Suspect]
     Indication: OSTEOPOROSIS
     Dosage: 5 MG
     Route: 042
     Dates: start: 20101105
  2. ACLASTA [Suspect]
     Dosage: 5 MG
     Route: 042
     Dates: start: 20111012
  3. ACLASTA [Suspect]
     Dosage: 5 MG
     Route: 042
     Dates: start: 20121016

REACTIONS (8)
  - Bladder transitional cell carcinoma [Fatal]
  - Hydronephrosis [Fatal]
  - Nausea [Fatal]
  - Vomiting [Fatal]
  - Renal disorder [Unknown]
  - Renal mass [Unknown]
  - Ureteric obstruction [Unknown]
  - Ureteral disorder [Unknown]
